FAERS Safety Report 11089493 (Version 2)
Quarter: 2015Q2

REPORT INFORMATION
  Report Type: Spontaneous
  Country: ES (occurrence: ES)
  Receive Date: 20150505
  Receipt Date: 20150526
  Transmission Date: 20150821
  Serious: Yes (Hospitalization)
  Sender: FDA-Public Use
  Company Number: ES-AUROBINDO-AUR-APL-2015-03959

PATIENT
  Age: 69 Year
  Sex: Male

DRUGS (8)
  1. PIPERACILLIN AND TAZOBACTAM [Suspect]
     Active Substance: PIPERACILLIN SODIUM\TAZOBACTAM SODIUM
     Indication: INFECTION PROPHYLAXIS
     Dosage: 4000 MG/8HR
     Route: 042
  2. VANCOMYCIN [Suspect]
     Active Substance: VANCOMYCIN
     Indication: INFECTION PROPHYLAXIS
     Dosage: 1000 MG/12 HR
     Route: 042
  3. LINEZOLID. [Suspect]
     Active Substance: LINEZOLID
     Indication: INFECTION PROPHYLAXIS
     Dosage: 600 MG/12HR
     Route: 042
  4. MEROPENEM. [Suspect]
     Active Substance: MEROPENEM
     Indication: INFECTION PROPHYLAXIS
     Dosage: 1000 MG/8HR
     Route: 042
  5. LEVOFLOXACIN 500MG [Suspect]
     Active Substance: LEVOFLOXACIN
     Indication: INFECTION PROPHYLAXIS
     Dosage: 500 MG/24HR
     Route: 048
  6. CYTARABIN [Concomitant]
     Active Substance: CYTARABINE
     Indication: ACUTE LEUKAEMIA
     Dosage: UNK
     Route: 065
  7. PANOBINOSTAT [Concomitant]
     Active Substance: PANOBINOSTAT
     Indication: ACUTE LEUKAEMIA
     Dosage: UNK
     Route: 065
  8. IDARUBICIN [Concomitant]
     Active Substance: IDARUBICIN
     Indication: ACUTE LEUKAEMIA
     Dosage: UNK
     Route: 065

REACTIONS (5)
  - Pyrexia [Not Recovered/Not Resolved]
  - Drug resistance [Not Recovered/Not Resolved]
  - Neutropenia [Not Recovered/Not Resolved]
  - Enterococcal infection [Not Recovered/Not Resolved]
  - Granulocytopenia [Not Recovered/Not Resolved]
